FAERS Safety Report 9386706 (Version 1)
Quarter: 2013Q3

REPORT INFORMATION
  Report Type: Spontaneous
  Country: AR (occurrence: AR)
  Receive Date: 20130708
  Receipt Date: 20130708
  Transmission Date: 20140515
  Serious: Yes (Other)
  Sender: FDA-Public Use
  Company Number: PHHY2013AR068509

PATIENT
  Age: 12 Year
  Sex: Female

DRUGS (3)
  1. CICLOSPORIN [Suspect]
     Indication: AUTOIMMUNE HEPATITIS
  2. MYCOPHENOLATE MOFETIL [Suspect]
     Indication: AUTOIMMUNE HEPATITIS
  3. PREDNISONE [Suspect]

REACTIONS (3)
  - Autoimmune hepatitis [Recovered/Resolved]
  - Hepatic fibrosis [Recovered/Resolved]
  - Gastrointestinal disorder [Unknown]
